FAERS Safety Report 11379978 (Version 2)
Quarter: 2015Q3

REPORT INFORMATION
  Report Type: Spontaneous
  Country: BR (occurrence: BR)
  Receive Date: 20150814
  Receipt Date: 20150909
  Transmission Date: 20151125
  Serious: Yes (Hospitalization)
  Sender: FDA-Public Use
  Company Number: BR-UCBSA-2015022256

PATIENT
  Sex: Female

DRUGS (1)
  1. CIMZIA [Suspect]
     Active Substance: CERTOLIZUMAB PEGOL
     Indication: PRODUCT USED FOR UNKNOWN INDICATION
     Dosage: UNK
     Dates: start: 20150601, end: 20150615

REACTIONS (7)
  - Wound [Unknown]
  - Drug dose omission [Unknown]
  - Pleural effusion [Recovered/Resolved]
  - Peripheral swelling [Unknown]
  - Hypersensitivity [Unknown]
  - Immunodeficiency [Unknown]
  - Purpura [Unknown]

NARRATIVE: CASE EVENT DATE: 201506
